FAERS Safety Report 9152297 (Version 2)
Quarter: 2013Q2

REPORT INFORMATION
  Report Type: Spontaneous
  Country: FR (occurrence: FR)
  Receive Date: 20130308
  Receipt Date: 20130611
  Transmission Date: 20140414
  Serious: Yes (Other)
  Sender: FDA-Public Use
  Company Number: FR-ELI_LILLY_AND_COMPANY-FR201302009165

PATIENT
  Sex: Male

DRUGS (3)
  1. CYMBALTA [Suspect]
     Dosage: 60 MG, QD
     Route: 048
     Dates: start: 201112
  2. NEURONTIN [Concomitant]
     Dosage: 100 MG, BID
  3. TIAPRIDAL [Concomitant]

REACTIONS (3)
  - Parkinsonism [Recovering/Resolving]
  - Cerebrovascular accident [Unknown]
  - Vascular dementia [Unknown]
